FAERS Safety Report 5477023-7 (Version None)
Quarter: 2007Q3

REPORT INFORMATION
  Report Type: 
  Country: None (occurrence: None)
  Receive Date: 20070831
  Receipt Date: 20070627
  Transmission Date: 20080115
  Serious: No
  Sender: FDA-Public Use
  Company Number: US-JNJFOC-20070305551

PATIENT
  Age: 72 Year
  Sex: Male
  Weight: 83.4619 kg

DRUGS (6)
  1. DACOGEN [Suspect]
     Indication: MYELODYSPLASTIC SYNDROME
     Dosage: 40 MG, 1 IN 1 DAY, INTRAVENOUS
     Route: 042
  2. HYDROUREA (HYDROXYCARBAMIDE) [Concomitant]
  3. ALLOPURINOL [Concomitant]
  4. EFFEXOR [Concomitant]
  5. CLONAZEPAM [Concomitant]
  6. LISINOPRIL [Concomitant]

REACTIONS (2)
  - BLOOD BLISTER [None]
  - RASH [None]
